FAERS Safety Report 6895616-7 (Version None)
Quarter: 2010Q3

REPORT INFORMATION
  Report Type: 
  Country: None (occurrence: None)
  Receive Date: 20100802
  Receipt Date: 20100728
  Transmission Date: 20110219
  Serious: Yes (Death)
  Sender: FDA-Public Use
  Company Number: PHHY2010AR49780

PATIENT
  Sex: Male

DRUGS (3)
  1. EXELON [Suspect]
     Indication: DEMENTIA ALZHEIMER'S TYPE
     Dosage: 1 DF, QD (5 CM PATCH)
     Route: 062
  2. STALEVO 100 [Suspect]
     Dosage: 100 MG
  3. STALEVO 100 [Suspect]
     Dosage: 150 MG

REACTIONS (1)
  - PNEUMONIA [None]
